FAERS Safety Report 21400906 (Version 1)
Quarter: 2022Q4

REPORT INFORMATION
  Report Type: Spontaneous
  Country: GB (occurrence: GB)
  Receive Date: 20221003
  Receipt Date: 20221003
  Transmission Date: 20230112
  Serious: Yes (Other)
  Sender: FDA-Public Use
  Company Number: None

PATIENT
  Age: 70 Year
  Sex: Male

DRUGS (1)
  1. PREGABALIN [Suspect]
     Active Substance: PREGABALIN
     Indication: Ill-defined disorder
     Dates: start: 20220916

REACTIONS (1)
  - Hallucinations, mixed [Recovering/Resolving]

NARRATIVE: CASE EVENT DATE: 20220919
